FAERS Safety Report 5916808-7 (Version None)
Quarter: 2008Q4

REPORT INFORMATION
  Report Type: 
  Country: None (occurrence: None)
  Receive Date: 20081013
  Receipt Date: 20080808
  Transmission Date: 20090506
  Serious: No
  Sender: FDA-Public Use
  Company Number: US-ABBOTT-08P-163-0469595-00

PATIENT
  Sex: Female

DRUGS (4)
  1. KALETRA [Suspect]
     Indication: DRUG USE FOR UNKNOWN INDICATION
  2. NUCLEOSIDES [Concomitant]
     Indication: DRUG USE FOR UNKNOWN INDICATION
  3. UNSPECIFIED MEDICATION [Concomitant]
     Indication: GOUT
  4. BIRTH CONTROL [Concomitant]
     Indication: CONTRACEPTION

REACTIONS (1)
  - LIVER FUNCTION TEST ABNORMAL [None]
